FAERS Safety Report 23469253 (Version 1)
Quarter: 2024Q1

REPORT INFORMATION
  Report Type: Spontaneous
  Country: BR (occurrence: BR)
  Receive Date: 20240202
  Receipt Date: 20240202
  Transmission Date: 20240410
  Serious: Yes (Other)
  Sender: FDA-Public Use
  Company Number: BR-AstraZeneca-2023-108744

PATIENT

DRUGS (1)
  1. METOPROLOL SUCCINATE [Suspect]
     Active Substance: METOPROLOL SUCCINATE
     Indication: Arrhythmia
     Dosage: 25 MILLIGRAM, QD
     Route: 048
     Dates: start: 20231213, end: 20240102

REACTIONS (9)
  - Tumour pain [Recovered/Resolved]
  - Nausea [Recovered/Resolved]
  - Weight increased [Recovering/Resolving]
  - Chest discomfort [Recovered/Resolved]
  - Wheezing [Recovering/Resolving]
  - Headache [Recovered/Resolved]
  - Dry mouth [Recovered/Resolved]
  - Fatigue [Recovered/Resolved]
  - Intentional product misuse [Unknown]

NARRATIVE: CASE EVENT DATE: 20231201
